FAERS Safety Report 10041787 (Version 1)
Quarter: 2014Q1

REPORT INFORMATION
  Report Type: Spontaneous
  Country: SE (occurrence: SE)
  Receive Date: 20140327
  Receipt Date: 20140327
  Transmission Date: 20141002
  Serious: Yes (Hospitalization)
  Sender: FDA-Public Use
  Company Number: SE-JNJFOC-20140312512

PATIENT
  Age: 79 Year
  Sex: Female

DRUGS (1)
  1. HALDOL [Suspect]
     Indication: CHOREA
     Route: 048

REACTIONS (3)
  - Somnolence [Recovered/Resolved]
  - Muscle rigidity [Recovered/Resolved]
  - Off label use [Unknown]
